FAERS Safety Report 10211617 (Version 2)
Quarter: 2014Q2

REPORT INFORMATION
  Report Type: Spontaneous
  Country: ES (occurrence: ES)
  Receive Date: 20140602
  Receipt Date: 20140602
  Transmission Date: 20141212
  Serious: Yes (Death)
  Sender: FDA-Public Use
  Company Number: ES-CUBIST PHARMACEUTICAL, INC.-2010S1001384

PATIENT
  Sex: 0

DRUGS (2)
  1. CUBICIN [Suspect]
     Indication: BACTERIAL INFECTION
     Dosage: 8 MG/KG, QD
     Route: 042
  2. CUBICIN [Suspect]
     Indication: OFF LABEL USE

REACTIONS (3)
  - Mediastinitis [Fatal]
  - Staphylococcal infection [Fatal]
  - Enterococcal infection [Fatal]
